FAERS Safety Report 4477803-0 (Version None)
Quarter: 2004Q4

REPORT INFORMATION
  Report Type: 
  Country: None (occurrence: None)
  Receive Date: 20041018
  Receipt Date: 20041008
  Transmission Date: 20050328
  Serious: Yes (Hospitalization)
  Sender: FDA-Public Use
  Company Number: FR-MERCK-0410FRA00038

PATIENT
  Age: 70 Year
  Sex: Female

DRUGS (4)
  1. ASPIRIN LYSINE [Suspect]
     Route: 048
  2. LORAZEPAM [Suspect]
     Route: 048
  3. ZOCOR [Suspect]
     Route: 048
     Dates: end: 20040825
  4. URAPIDIL [Suspect]
     Route: 048

REACTIONS (3)
  - ELECTROENCEPHALOGRAM ABNORMAL [None]
  - HYPERHIDROSIS [None]
  - VENTRICULAR EXTRASYSTOLES [None]
